FAERS Safety Report 7331349-0 (Version None)
Quarter: 2011Q1

REPORT INFORMATION
  Report Type: 
  Country: None (occurrence: None)
  Receive Date: 20110304
  Receipt Date: 20110211
  Transmission Date: 20110831
  Serious: Yes (Hospitalization, Other)
  Sender: FDA-Public Use
  Company Number: US-BAYER-200938308NA

PATIENT
  Sex: Female
  Weight: 100 kg

DRUGS (15)
  1. NABUMETONE [Concomitant]
  2. AMOXICILLIN [Concomitant]
     Dosage: UNK
     Dates: start: 20080601, end: 20090201
  3. YAZ [Suspect]
     Indication: CONTRACEPTION
     Dosage: UNK UNK, QD
     Route: 048
     Dates: start: 20080602, end: 20080815
  4. YAZ [Suspect]
     Route: 048
     Dates: start: 20080901, end: 20081101
  5. YAZ [Suspect]
     Route: 048
     Dates: start: 20080901, end: 20081115
  6. FLEXERIL [Concomitant]
  7. IBUPROFEN [Concomitant]
     Dosage: UNK
     Dates: start: 20081101
  8. CHANTIX [Concomitant]
     Dosage: UNK
     Dates: start: 20080301, end: 20080701
  9. FLUOXETINE [Concomitant]
  10. ZANTAC [Concomitant]
     Dosage: 150 MG, UNK
  11. YAZ [Suspect]
     Route: 048
     Dates: start: 20080101, end: 20090715
  12. HYDROCODONE BITARTRATE [Concomitant]
     Dosage: UNK
     Dates: start: 20081101
  13. YAZ [Suspect]
     Route: 048
     Dates: start: 20080101, end: 20090701
  14. NAPROXEN [Concomitant]
  15. APAP TAB [Concomitant]
     Dosage: UNK
     Dates: start: 20081101

REACTIONS (7)
  - VOMITING [None]
  - MALAISE [None]
  - CHOLECYSTITIS CHRONIC [None]
  - BILIARY DYSKINESIA [None]
  - DIARRHOEA [None]
  - ABDOMINAL PAIN [None]
  - INFLUENZA LIKE ILLNESS [None]
